FAERS Safety Report 4590726-1 (Version None)
Quarter: 2005Q1

REPORT INFORMATION
  Report Type: 
  Country: None (occurrence: None)
  Receive Date: 20050224
  Receipt Date: 20030605
  Transmission Date: 20050727
  Serious: Yes (Hospitalization, Disabling)
  Sender: FDA-Public Use
  Company Number: US-MERCK-0306USA00929

PATIENT
  Age: 74 Year
  Sex: Male
  Weight: 77 kg

DRUGS (1)
  1. VIOXX [Suspect]
     Route: 048

REACTIONS (11)
  - ANGINA PECTORIS [None]
  - BLOOD PRESSURE INCREASED [None]
  - BRADYCARDIA [None]
  - CAROTID ARTERY OCCLUSION [None]
  - CAROTID ARTERY STENOSIS [None]
  - CEREBROVASCULAR ACCIDENT [None]
  - CONVULSION [None]
  - DRUG HYPERSENSITIVITY [None]
  - HEMIANOPIA HOMONYMOUS [None]
  - SEDATION [None]
  - SENSORY LOSS [None]
